FAERS Safety Report 23254312 (Version 1)
Quarter: 2023Q4

REPORT INFORMATION
  Report Type: Spontaneous
  Country: FR (occurrence: FR)
  Receive Date: 20231202
  Receipt Date: 20231202
  Transmission Date: 20240110
  Serious: Yes (Life-Threatening)
  Sender: FDA-Public Use
  Company Number: None

PATIENT
  Age: 30 Year
  Sex: Female
  Weight: 59 kg

DRUGS (1)
  1. ARTEMETHER\LUMEFANTRINE [Suspect]
     Active Substance: ARTEMETHER\LUMEFANTRINE
     Indication: Plasmodium falciparum infection
     Dosage: 8 DOSAGE FORM (4 CP X 2)
     Route: 065
     Dates: start: 20230902, end: 20230907

REACTIONS (1)
  - Intravascular haemolysis [Unknown]

NARRATIVE: CASE EVENT DATE: 20230904
